FAERS Safety Report 20710459 (Version 1)
Quarter: 2022Q2

REPORT INFORMATION
  Report Type: Report from Study
  Country: DE (occurrence: DE)
  Receive Date: 20220414
  Receipt Date: 20220414
  Transmission Date: 20220721
  Serious: Yes (Hospitalization)
  Sender: FDA-Public Use
  Company Number: DE-BAYER-2022A049859

PATIENT
  Age: 63 Year
  Sex: Female

DRUGS (2)
  1. COPANLISIB [Suspect]
     Active Substance: COPANLISIB
     Indication: Splenic marginal zone lymphoma
     Dosage: UNK
     Dates: start: 20220325
  2. RITUXIMAB [Suspect]
     Active Substance: RITUXIMAB
     Indication: Splenic marginal zone lymphoma
     Dosage: UNK
     Dates: start: 20220326

REACTIONS (1)
  - Injection site necrosis [Not Recovered/Not Resolved]

NARRATIVE: CASE EVENT DATE: 20220325
